FAERS Safety Report 5031237-9 (Version None)
Quarter: 2006Q2

REPORT INFORMATION
  Report Type: 
  Country: None (occurrence: None)
  Receive Date: 20060621
  Receipt Date: 20060512
  Transmission Date: 20061013
  Serious: No
  Sender: FDA-Public Use
  Company Number: US-GLAXOSMITHKLINE-A0605414A

PATIENT
  Age: 69 Year
  Sex: Male

DRUGS (7)
  1. AVANDARYL [Suspect]
     Route: 048
     Dates: start: 20060512
  2. LABETALOL [Concomitant]
  3. LOTREL [Concomitant]
  4. METFORMIN HCL [Concomitant]
  5. ZOCOR [Concomitant]
  6. NEXIUM [Concomitant]
  7. ASPIRIN [Concomitant]

REACTIONS (2)
  - COLD SWEAT [None]
  - DIZZINESS [None]
